FAERS Safety Report 19502121 (Version 1)
Quarter: 2021Q3

REPORT INFORMATION
  Report Type: Spontaneous
  Country: FR (occurrence: FR)
  Receive Date: 20210707
  Receipt Date: 20210707
  Transmission Date: 20211014
  Serious: Yes (Hospitalization)
  Sender: FDA-Public Use
  Company Number: FR-ACCORD-230879

PATIENT
  Age: 33 Year
  Sex: Female
  Weight: 86 kg

DRUGS (2)
  1. LETROZOLE. [Suspect]
     Active Substance: LETROZOLE
     Indication: BREAST CANCER
     Dates: start: 202101
  2. VERZENIOS [Suspect]
     Active Substance: ABEMACICLIB
     Indication: BREAST CANCER
     Route: 048
     Dates: start: 202101, end: 20210506

REACTIONS (7)
  - Lung opacity [Not Recovered/Not Resolved]
  - Diarrhoea [Not Recovered/Not Resolved]
  - Dyspnoea [Not Recovered/Not Resolved]
  - Pericardial effusion [Not Recovered/Not Resolved]
  - Decreased appetite [Not Recovered/Not Resolved]
  - Alopecia [Not Recovered/Not Resolved]
  - Asthenia [Not Recovered/Not Resolved]

NARRATIVE: CASE EVENT DATE: 2021
